FAERS Safety Report 5808392-3 (Version None)
Quarter: 2008Q3

REPORT INFORMATION
  Report Type: 
  Country: None (occurrence: None)
  Receive Date: 20080714
  Receipt Date: 20080702
  Transmission Date: 20090109
  Serious: Yes (Hospitalization)
  Sender: FDA-Public Use
  Company Number: PHHY2008JP13006

PATIENT
  Age: 59 Year
  Sex: Female

DRUGS (4)
  1. COMTAN [Suspect]
     Indication: DRUG EFFECT DECREASED
     Dosage: 600 MG, UNK
     Route: 048
     Dates: start: 20080601, end: 20080630
  2. COMTAN [Interacting]
     Dosage: 400 MG, UNK
     Route: 048
     Dates: start: 20080701, end: 20080702
  3. EC DOPARL [Interacting]
     Indication: PARKINSON'S DISEASE
     Dosage: 6 TIMES DAILY
     Route: 048
  4. SELEGILINE HCL [Concomitant]
     Indication: PARKINSON'S DISEASE
     Route: 048

REACTIONS (2)
  - DRUG INTERACTION [None]
  - NAUSEA [None]
